FAERS Safety Report 25857292 (Version 1)
Quarter: 2025Q3

REPORT INFORMATION
  Report Type: Spontaneous
  Country: US (occurrence: US)
  Receive Date: 20250929
  Receipt Date: 20250929
  Transmission Date: 20251020
  Serious: Yes (Other)
  Sender: STRIDES
  Company Number: US-STRIDES ARCOLAB LIMITED-2024SP016366

PATIENT
  Age: 43 Year
  Sex: Female

DRUGS (3)
  1. PREDNISOLONE [Suspect]
     Active Substance: PREDNISOLONE
     Indication: Ototoxicity
     Route: 048
  2. TEPROTUMUMAB [Concomitant]
     Active Substance: TEPROTUMUMAB
     Indication: Endocrine ophthalmopathy
     Route: 065
  3. TEPROTUMUMAB [Concomitant]
     Active Substance: TEPROTUMUMAB
     Route: 065

REACTIONS (1)
  - Therapy non-responder [Unknown]
